FAERS Safety Report 24949814 (Version 1)
Quarter: 2025Q1

REPORT INFORMATION
  Report Type: Spontaneous
  Country: US (occurrence: None)
  Receive Date: 20250210
  Receipt Date: 20250210
  Transmission Date: 20250408
  Serious: Yes (Hospitalization)
  Sender: FDA-CTU
  Company Number: None

PATIENT
  Age: 62 Year
  Sex: Female

DRUGS (6)
  1. GAMMAGARD LIQUID [Suspect]
     Active Substance: HUMAN IMMUNOGLOBULIN G
     Dosage: OTHER STRENGTH : 20GM/200M ;?FREQUENCY : WEEKLY;?
     Route: 042
     Dates: start: 202410
  2. GAMMAGARD LIQUID [Suspect]
     Active Substance: HUMAN IMMUNOGLOBULIN G
     Dosage: OTHER STRENGTH : 1GM/10ML;?FREQUENCY : WEEKLY;?
     Route: 042
     Dates: start: 202410
  3. DEPHENHYDRAMINE (ALLERGY) [Concomitant]
  4. SODIUM CHLORIDE [Concomitant]
     Active Substance: SODIUM CHLORIDE
  5. SODIUM CHLORIDE [Concomitant]
     Active Substance: SODIUM CHLORIDE
  6. ACETAMINOPHEN [Concomitant]
     Active Substance: ACETAMINOPHEN

REACTIONS (3)
  - Pancreatitis [None]
  - Gastritis erosive [None]
  - Infusion related reaction [None]

NARRATIVE: CASE EVENT DATE: 20241126
